FAERS Safety Report 9064480 (Version 3)
Quarter: 2013Q2

REPORT INFORMATION
  Report Type: Spontaneous
  Country: RU (occurrence: RU)
  Receive Date: 20130128
  Receipt Date: 20130430
  Transmission Date: 20140414
  Serious: Yes (Hospitalization, Disabling, Other)
  Sender: FDA-Public Use
  Company Number: RU-JNJFOC-20120810055

PATIENT
  Age: 41 Year
  Sex: Female

DRUGS (7)
  1. RISPOLEPT CONSTA [Suspect]
     Indication: SCHIZOPHRENIA
     Route: 030
     Dates: start: 1999, end: 2012
  2. FERRUM [Concomitant]
     Route: 065
  3. OMEZ [Concomitant]
     Dosage: 10 DAYS
  4. TRIMEDAT [Concomitant]
     Dosage: BEFORE MEALS, 1 MONTH
     Route: 065
  5. URSOSAN [Concomitant]
     Dosage: 3 CAPSULES AT NIGHT FOR 3 MONTHS
     Route: 065
  6. PENZITAL [Concomitant]
     Dosage: DURING MEALS, 10 DAYS
     Route: 065
  7. MALTOFER [Concomitant]
     Dosage: 1 MONTH
     Route: 065

REACTIONS (14)
  - Anaemia [Recovering/Resolving]
  - Portal hypertension [Unknown]
  - Drug-induced liver injury [Recovering/Resolving]
  - Blood bilirubin unconjugated increased [Recovered/Resolved]
  - Aspartate aminotransferase increased [Recovered/Resolved]
  - Alanine aminotransferase increased [Recovered/Resolved]
  - Pancreatitis [Unknown]
  - Pancytopenia [Unknown]
  - Iron deficiency [Recovering/Resolving]
  - Basedow^s disease [Unknown]
  - Obesity [Unknown]
  - Gastritis [Unknown]
  - Duodenitis [Unknown]
  - Headache [Unknown]
